FAERS Safety Report 7680142-8 (Version None)
Quarter: 2011Q3

REPORT INFORMATION
  Report Type: 
  Country: None (occurrence: None)
  Receive Date: 20110812
  Receipt Date: 20110804
  Transmission Date: 20111222
  Serious: Yes (Disabling, Other)
  Sender: FDA-Public Use
  Company Number: US-BRACCO-002051

PATIENT
  Sex: Male
  Weight: 115.65 kg

DRUGS (34)
  1. OMNISCAN [Suspect]
     Indication: NUCLEAR MAGNETIC RESONANCE IMAGING BRAIN
     Dates: start: 20031111, end: 20031111
  2. MAGNEVIST [Suspect]
     Indication: ANGIOGRAM
     Dates: start: 20040420, end: 20040420
  3. ACETYLSALICYLIC ACID SRT [Concomitant]
  4. PREVACID [Concomitant]
  5. TRAMADOL HCL [Concomitant]
  6. ZETIA [Concomitant]
  7. ACTOS [Concomitant]
  8. ALPRAZOLAM [Concomitant]
  9. CYCLOBENZAPRINE [Concomitant]
  10. PLAVIX [Concomitant]
  11. LIPITOR [Concomitant]
  12. BIAXIN [Concomitant]
  13. INSULIN GLARGINE [Concomitant]
  14. SINGULAIR [Concomitant]
  15. DIOVAN [Concomitant]
  16. HYDROCHLOROTHIAZIDE [Concomitant]
  17. PROZAC [Concomitant]
  18. ADVAIR DISKUS 100/50 [Concomitant]
  19. MAGNEVIST [Suspect]
     Indication: NUCLEAR MAGNETIC RESONANCE IMAGING ABDOMINAL
     Dates: start: 20060510, end: 20060510
  20. TRICOR [Concomitant]
  21. MAGNEVIST [Suspect]
     Indication: NUCLEAR MAGNETIC RESONANCE IMAGING
     Dates: start: 20040420, end: 20040420
  22. FUROSEMIDE [Concomitant]
  23. SYNTHROID [Concomitant]
  24. PROTONIX [Concomitant]
  25. PREDNISONE [Concomitant]
  26. AMARYL [Concomitant]
  27. AVANDIA [Concomitant]
  28. MULTIHANCE [Suspect]
     Indication: NUCLEAR MAGNETIC RESONANCE IMAGING
     Dates: start: 20070822, end: 20070822
  29. EXENATIDE [Concomitant]
  30. ZOCOR [Concomitant]
  31. CONTRAST MEDIA [Suspect]
     Indication: NUCLEAR MAGNETIC RESONANCE IMAGING BRAIN
     Dates: start: 20031105, end: 20031105
  32. AMBIEN [Concomitant]
  33. CELEBREX [Concomitant]
  34. AGGRENOX [Concomitant]

REACTIONS (1)
  - NEPHROGENIC SYSTEMIC FIBROSIS [None]
